FAERS Safety Report 6544235-0 (Version None)
Quarter: 2010Q1

REPORT INFORMATION
  Report Type: 
  Country: None (occurrence: None)
  Receive Date: 20100120
  Receipt Date: 20100108
  Transmission Date: 20100710
  Serious: Yes (Hospitalization, Other)
  Sender: FDA-Public Use
  Company Number: CH-ELI_LILLY_AND_COMPANY-CH201001001422

PATIENT

DRUGS (1)
  1. FLUCTINE [Suspect]
     Dosage: 20 MG, DAILY (1/D)
     Route: 064
     Dates: start: 20091001, end: 20091019

REACTIONS (12)
  - AGITATION [None]
  - CEREBRAL HAEMORRHAGE NEONATAL [None]
  - CEREBRAL VENTRICLE DILATATION [None]
  - CRYING [None]
  - DRUG EXPOSURE DURING PREGNANCY [None]
  - DRUG WITHDRAWAL SYNDROME NEONATAL [None]
  - HYPERHIDROSIS [None]
  - HYPERTONIA [None]
  - INSOMNIA [None]
  - NASAL CONGESTION [None]
  - SNEEZING [None]
  - TREMOR [None]
